FAERS Safety Report 6819288-2 (Version None)
Quarter: 2010Q3

REPORT INFORMATION
  Report Type: 
  Country: None (occurrence: None)
  Receive Date: 20100707
  Receipt Date: 20100705
  Transmission Date: 20110219
  Serious: Yes (Other)
  Sender: FDA-Public Use
  Company Number: US-RB-012542-10

PATIENT
  Age: 80 Year
  Sex: Female

DRUGS (1)
  1. MUCINEX [Suspect]
     Route: 048
     Dates: start: 20100621

REACTIONS (2)
  - EPISTAXIS [None]
  - INCORRECT DRUG ADMINISTRATION DURATION [None]
